FAERS Safety Report 9300679 (Version 1)
Quarter: 2013Q1

REPORT INFORMATION
  Report Type: Spontaneous
  Country: US (occurrence: None)
  Receive Date: 20130107
  Receipt Date: 20130107
  Transmission Date: 20140127
  Serious: Yes (Other)
  Sender: FDA-Public Use
  Company Number: PHEH2012US21996

PATIENT
  Age: 56 Year
  Sex: Female
  Weight: 67.6 kg

DRUGS (4)
  1. GILENYA (FTY) CAPSULE, 0.5MG [Suspect]
     Indication: MULTIPLE SCLEROSIS
     Route: 048
     Dates: start: 20111204
  2. ASPIRIN [Suspect]
     Route: 048
  3. SYNTHROID [Suspect]
  4. KEPPRA [Suspect]
     Route: 048

REACTIONS (3)
  - Upper respiratory tract infection [None]
  - Cough [None]
  - Pyrexia [None]
